FAERS Safety Report 6517497-3 (Version None)
Quarter: 2009Q4

REPORT INFORMATION
  Report Type: 
  Country: None (occurrence: None)
  Receive Date: 20091224
  Receipt Date: 20091217
  Transmission Date: 20100525
  Serious: Yes (Hospitalization, Other)
  Sender: FDA-Public Use
  Company Number: US-RB-027257-09

PATIENT
  Age: 14 Year
  Sex: Female

DRUGS (1)
  1. DELSYM ADULT ORANGE [Suspect]
     Route: 048
     Dates: start: 20091203

REACTIONS (10)
  - CONVULSION [None]
  - DISORIENTATION [None]
  - DRUG TOXICITY [None]
  - DYSLEXIA [None]
  - EYE MOVEMENT DISORDER [None]
  - FATIGUE [None]
  - HALLUCINATION [None]
  - MUSCLE TWITCHING [None]
  - PARANOIA [None]
  - PSYCHOTIC DISORDER [None]
